FAERS Safety Report 15707868 (Version 46)
Quarter: 2024Q2

REPORT INFORMATION
  Report Type: Other
  Country: DE (occurrence: DE)
  Receive Date: 20181211
  Receipt Date: 20240422
  Transmission Date: 20240716
  Serious: Yes (Hospitalization, Other)
  Sender: FDA-Public Use
  Company Number: DE-ROCHE-2173418

PATIENT
  Age: 43 Year
  Sex: Male

DRUGS (14)
  1. OCREVUS [Suspect]
     Active Substance: OCRELIZUMAB
     Indication: Relapsing-remitting multiple sclerosis
     Route: 042
     Dates: start: 20180809
  2. OCREVUS [Suspect]
     Active Substance: OCRELIZUMAB
     Dosage: SECOND INFUSION 2ND INITIAL DOSE
     Route: 042
     Dates: start: 20180823
  3. OCREVUS [Suspect]
     Active Substance: OCRELIZUMAB
     Dosage: SECOND MAINTENANCE DOSE
     Route: 042
     Dates: start: 20190923
  4. OCREVUS [Suspect]
     Active Substance: OCRELIZUMAB
     Dosage: 3RD MAINTENANCE DOSE
     Route: 042
     Dates: start: 20200505
  5. OCREVUS [Suspect]
     Active Substance: OCRELIZUMAB
     Route: 042
     Dates: start: 20210526
  6. OCREVUS [Suspect]
     Active Substance: OCRELIZUMAB
     Route: 042
     Dates: start: 20180809
  7. TIZANIDINE [Suspect]
     Active Substance: TIZANIDINE
     Indication: Product used for unknown indication
     Dosage: 1-0-1
     Route: 065
  8. CORTISONE [Suspect]
     Active Substance: CORTISONE
     Indication: Multiple sclerosis relapse
     Route: 042
     Dates: start: 20180815, end: 20180817
  9. CORTISONE [Suspect]
     Active Substance: CORTISONE
     Indication: Premedication
     Route: 042
  10. CORTISONE [Suspect]
     Active Substance: CORTISONE
     Route: 065
     Dates: start: 20210526
  11. COMIRNATY (TOZINAMERAN) [Suspect]
     Active Substance: TOZINAMERAN
     Indication: Prophylaxis
     Route: 065
     Dates: start: 20210819, end: 20210819
  12. COMIRNATY (TOZINAMERAN) [Suspect]
     Active Substance: TOZINAMERAN
     Indication: COVID-19 prophylaxis
  13. DALFAMPRIDINE [Concomitant]
     Active Substance: DALFAMPRIDINE
  14. TAMSULOSIN [Concomitant]
     Active Substance: TAMSULOSIN

REACTIONS (51)
  - Anxiety [Recovered/Resolved]
  - Limb fracture [Recovered/Resolved]
  - Infusion site pain [Recovered/Resolved]
  - Fatigue [Not Recovered/Not Resolved]
  - Somnolence [Unknown]
  - Neuritis [Recovered/Resolved]
  - Myosclerosis [Recovered/Resolved]
  - Fall [Unknown]
  - Erythema [Recovered/Resolved]
  - Dizziness [Recovered/Resolved]
  - Pain in extremity [Recovered/Resolved]
  - Nail bed inflammation [Recovered/Resolved]
  - Tachycardia [Recovered/Resolved]
  - Heart rate increased [Recovered/Resolved]
  - Skin disorder [Not Recovered/Not Resolved]
  - Fungal infection [Unknown]
  - Asthenia [Recovered/Resolved]
  - Energy increased [Unknown]
  - Lymphadenopathy [Recovered/Resolved]
  - Impaired healing [Recovered/Resolved]
  - Multiple sclerosis [Recovered/Resolved]
  - Infusion related reaction [Unknown]
  - Nasopharyngitis [Not Recovered/Not Resolved]
  - Uhthoff^s phenomenon [Unknown]
  - Cough [Not Recovered/Not Resolved]
  - Headache [Recovered/Resolved]
  - Axillary pain [Recovered/Resolved]
  - Burning sensation [Recovered/Resolved]
  - Alopecia [Recovered/Resolved]
  - Groin infection [Recovered/Resolved]
  - Acne [Recovered/Resolved]
  - Throat irritation [Recovered/Resolved]
  - Dry skin [Recovered/Resolved]
  - Mass [Recovered/Resolved]
  - Influenza like illness [Recovered/Resolved]
  - Nodal osteoarthritis [Not Recovered/Not Resolved]
  - Fatigue [Recovered/Resolved]
  - Fatigue [Recovered/Resolved]
  - Restlessness [Unknown]
  - Insomnia [Recovered/Resolved]
  - Headache [Recovered/Resolved]
  - Lhermitte^s sign [Recovered/Resolved]
  - Arthralgia [Recovering/Resolving]
  - Rash erythematous [Unknown]
  - Bladder disorder [Recovered/Resolved]
  - Nausea [Not Recovered/Not Resolved]
  - Chromaturia [Recovering/Resolving]
  - Abdominal discomfort [Recovered/Resolved]
  - Herpes zoster [Recovered/Resolved]
  - COVID-19 [Recovered/Resolved]
  - Urinary tract infection [Recovered/Resolved]

NARRATIVE: CASE EVENT DATE: 20180810
